FAERS Safety Report 16508061 (Version 1)
Quarter: 2019Q3

REPORT INFORMATION
  Report Type: Spontaneous
  Country: JP (occurrence: JP)
  Receive Date: 20190701
  Receipt Date: 20190701
  Transmission Date: 20191004
  Serious: Yes (Life-Threatening, Other)
  Sender: FDA-Public Use
  Company Number: JP-ASTRAZENECA-2019SE86523

PATIENT
  Age: 21554 Day
  Sex: Male
  Weight: 53 kg

DRUGS (3)
  1. PREDONINE [Concomitant]
     Active Substance: PREDNISOLONE
     Indication: DRUG ERUPTION
     Dosage: 25.0MG UNKNOWN
     Route: 048
     Dates: start: 20190422
  2. HEPARIN [Concomitant]
     Active Substance: HEPARIN SODIUM
     Dosage: 24 HOURS20000.0DF UNKNOWN
     Route: 041
     Dates: start: 20190419, end: 20190605
  3. BRILINTA [Suspect]
     Active Substance: TICAGRELOR
     Indication: ACUTE MYOCARDIAL INFARCTION
     Route: 048
     Dates: start: 20190531, end: 20190607

REACTIONS (2)
  - Retroperitoneal haematoma [Recovering/Resolving]
  - Hepatic enzyme increased [Recovering/Resolving]

NARRATIVE: CASE EVENT DATE: 20190603
